FAERS Safety Report 7375061-0 (Version None)
Quarter: 2011Q1

REPORT INFORMATION
  Report Type: 
  Country: None (occurrence: None)
  Receive Date: 20110325
  Receipt Date: 20110322
  Transmission Date: 20110831
  Serious: Yes (Life-Threatening)
  Sender: FDA-Public Use
  Company Number: PHHY2011CA04822

PATIENT
  Sex: Female

DRUGS (1)
  1. ACLASTA [Suspect]
     Indication: OSTEOPOROSIS
     Dosage: 5 MG
     Dates: start: 20100326

REACTIONS (6)
  - PAIN IN EXTREMITY [None]
  - CHILLS [None]
  - DIARRHOEA [None]
  - SINUSITIS [None]
  - HYPOKINESIA [None]
  - FEELING ABNORMAL [None]
